FAERS Safety Report 24960606 (Version 1)
Quarter: 2025Q1

REPORT INFORMATION
  Report Type: Spontaneous
  Country: US (occurrence: None)
  Receive Date: 20250211
  Receipt Date: 20250211
  Transmission Date: 20250409
  Serious: Yes (Hospitalization, Disabling)
  Sender: FDA-CTU
  Company Number: None

PATIENT
  Age: 37 Year
  Sex: Female
  Weight: 54 kg

DRUGS (1)
  1. HERBALS\TETRAHYDROCANNABINOL UNSPECIFIED [Suspect]
     Active Substance: HERBALS\TETRAHYDROCANNABINOL UNSPECIFIED
     Indication: Myalgia
     Dates: start: 20250201, end: 20250201

REACTIONS (4)
  - Palpitations [None]
  - Dyspnoea [None]
  - Anxiety [None]
  - Postpartum stress disorder [None]

NARRATIVE: CASE EVENT DATE: 20250201
